FAERS Safety Report 23921337 (Version 2)
Quarter: 2024Q2

REPORT INFORMATION
  Report Type: Report from Study
  Country: US (occurrence: US)
  Receive Date: 20240530
  Receipt Date: 20240625
  Transmission Date: 20240715
  Serious: Yes (Other)
  Sender: FDA-Public Use
  Company Number: US-OTSUKA-2024_010656

PATIENT
  Age: 62 Year
  Sex: Female

DRUGS (8)
  1. TOLVAPTAN [Suspect]
     Active Substance: TOLVAPTAN
     Indication: Congenital cystic kidney disease
     Dosage: UNK
     Route: 065
     Dates: start: 20230710
  2. TOLVAPTAN [Suspect]
     Active Substance: TOLVAPTAN
     Dosage: UNK
     Route: 065
     Dates: start: 20230622
  3. TOLVAPTAN [Suspect]
     Active Substance: TOLVAPTAN
     Dosage: 45 MG, QD (UPON AWAKING)
     Route: 048
     Dates: start: 20240214
  4. TOLVAPTAN [Suspect]
     Active Substance: TOLVAPTAN
     Dosage: 15 MG, QD (8 HOURS LATER)
     Route: 048
     Dates: start: 20240214
  5. KEFTAB [Concomitant]
     Active Substance: CEPHALEXIN HYDROCHLORIDE
     Indication: Prophylaxis urinary tract infection
     Dosage: 1 DF (250 MG, 4 TIMES A WEEK)
     Route: 048
     Dates: start: 20230919
  6. HYDRODIURIL [Concomitant]
     Active Substance: HYDROCHLOROTHIAZIDE
     Indication: Product used for unknown indication
     Dosage: 1 DF (4 TIMES WEEKLY)
     Route: 048
     Dates: start: 20230811
  7. PRINIVIL [Concomitant]
     Active Substance: LISINOPRIL
     Indication: Product used for unknown indication
     Dosage: 1 DF, QD (20 MG)
     Route: 048
     Dates: start: 20230811
  8. ZESTRIL [Concomitant]
     Active Substance: LISINOPRIL
     Indication: Product used for unknown indication
     Dosage: 1 DF, QD (20 MG)
     Route: 048
     Dates: start: 20230811

REACTIONS (29)
  - Knee arthroplasty [Unknown]
  - Cholecystitis acute [Unknown]
  - Pericardial effusion [Unknown]
  - Hip arthroplasty [Unknown]
  - Blood potassium decreased [Recovered/Resolved]
  - Liver function test increased [Unknown]
  - Post procedural complication [Unknown]
  - Cholelithiasis [Unknown]
  - Atelectasis [Unknown]
  - Hepatic cyst [Unknown]
  - Arteriosclerosis [Unknown]
  - Vascular calcification [Unknown]
  - Lipase increased [Unknown]
  - C-reactive protein increased [Unknown]
  - Full blood count abnormal [Unknown]
  - Blood chloride decreased [Unknown]
  - Anion gap increased [Unknown]
  - Blood calcium decreased [Unknown]
  - Protein total decreased [Unknown]
  - Blood albumin decreased [Unknown]
  - Hyponatraemia [Unknown]
  - Blood urea increased [Unknown]
  - Blood creatinine increased [Unknown]
  - Glomerular filtration rate decreased [Unknown]
  - Blood glucose increased [Unknown]
  - Abdominal distension [Unknown]
  - Constipation [Unknown]
  - Dizziness [Unknown]
  - Intentional dose omission [Not Recovered/Not Resolved]

NARRATIVE: CASE EVENT DATE: 20240213
